FAERS Safety Report 9312259 (Version 1)
Quarter: 2013Q1

REPORT INFORMATION
  Report Type: Spontaneous
  Country: US (occurrence: None)
  Receive Date: 20130212
  Receipt Date: 20130212
  Transmission Date: 20140127
  Serious: Yes (Hospitalization, Other)
  Sender: FDA-Public Use
  Company Number: 09-AUR-09924

PATIENT
  Age: 35 Year
  Sex: Female

DRUGS (1)
  1. CEFTRIAXONE (CEFTRIAXONE) [Suspect]
     Indication: DIVERTICULUM INTESTINAL
     Dosage: 9 D

REACTIONS (2)
  - Pancreatitis acute [None]
  - Cholelithiasis [None]
